FAERS Safety Report 14742881 (Version 1)
Quarter: 2018Q2

REPORT INFORMATION
  Report Type: Spontaneous
  Country: US (occurrence: US)
  Receive Date: 20180410
  Receipt Date: 20180410
  Transmission Date: 20180711
  Serious: No
  Sender: FDA-Public Use
  Company Number: US-VIFOR (INTERNATIONAL) INC.-VIT-2018-03442

PATIENT
  Sex: Female

DRUGS (21)
  1. VELTASSA [Suspect]
     Active Substance: PATIROMER
     Indication: HYPERKALAEMIA
     Route: 048
     Dates: start: 20160408
  2. AMLODIPINE BESILATE [Concomitant]
     Active Substance: AMLODIPINE BESYLATE
  3. IRON [Concomitant]
     Active Substance: IRON
  4. ISOSORBIDE MONONITRATE. [Concomitant]
     Active Substance: ISOSORBIDE MONONITRATE
  5. JANUVIA [Concomitant]
     Active Substance: SITAGLIPTIN PHOSPHATE
  6. PROCRIT [Concomitant]
     Active Substance: ERYTHROPOIETIN
  7. ALLOPURINOL. [Concomitant]
     Active Substance: ALLOPURINOL
  8. ACETYLSALICYLIC ACID [Concomitant]
     Active Substance: ASPIRIN
  9. CLONIDINE HYDROCHLORIDE. [Concomitant]
     Active Substance: CLONIDINE HYDROCHLORIDE
  10. TYLENOL ARTHRITIS PAIN [Concomitant]
     Active Substance: ACETAMINOPHEN
  11. EXCEDRIN TENSION HEADACHE [Concomitant]
     Active Substance: ACETAMINOPHEN\CAFFEINE
  12. LOSARTAN POTASSIUM. [Concomitant]
     Active Substance: LOSARTAN POTASSIUM
  13. DOXAZOSIN MESILATE [Concomitant]
     Active Substance: DOXAZOSIN MESYLATE
  14. LASIX [Concomitant]
     Active Substance: FUROSEMIDE
  15. AMARYL [Concomitant]
     Active Substance: GLIMEPIRIDE
  16. PRAVACHOL [Concomitant]
     Active Substance: PRAVASTATIN SODIUM
  17. PRILOSEC [Concomitant]
     Active Substance: OMEPRAZOLE MAGNESIUM
  18. GLICLAZIDE [Concomitant]
     Active Substance: GLICLAZIDE
  19. DRISDOL [Concomitant]
     Active Substance: ERGOCALCIFEROL
  20. LEVEMIR [Concomitant]
     Active Substance: INSULIN DETEMIR
  21. COREG [Concomitant]
     Active Substance: CARVEDILOL

REACTIONS (2)
  - Drug dose omission [Unknown]
  - No adverse event [Unknown]
